FAERS Safety Report 7337749-7 (Version None)
Quarter: 2011Q1

REPORT INFORMATION
  Report Type: 
  Country: None (occurrence: None)
  Receive Date: 20110308
  Receipt Date: 20110224
  Transmission Date: 20110831
  Serious: Yes (Disabling, Other)
  Sender: FDA-Public Use
  Company Number: ES-JNJFOC-20110300579

PATIENT
  Sex: Female
  Weight: 76 kg

DRUGS (3)
  1. STELARA [Suspect]
     Indication: PSORIASIS
     Route: 058
  2. LOSARTAN POTASSIUM [Concomitant]
     Indication: HYPOTENSION
  3. EUTIROX [Concomitant]
     Indication: HYPOTHYROIDISM

REACTIONS (3)
  - HYPOTENSION [None]
  - APHTHOUS STOMATITIS [None]
  - HEADACHE [None]
